FAERS Safety Report 10186100 (Version 2)
Quarter: 2014Q2

REPORT INFORMATION
  Report Type: Spontaneous
  Country: US (occurrence: US)
  Receive Date: 20140521
  Receipt Date: 20140521
  Transmission Date: 20141212
  Serious: Yes (Hospitalization, Other)
  Sender: FDA-Public Use
  Company Number: US-MALLINCKRODT-T201401531

PATIENT
  Age: 28 Year
  Sex: Male
  Weight: 86.16 kg

DRUGS (3)
  1. OPTIMARK [Suspect]
     Indication: NUCLEAR MAGNETIC RESONANCE IMAGING
     Dosage: 15 ML, SINGLE
     Route: 042
     Dates: start: 20140306, end: 20140306
  2. CALCIUM [Concomitant]
     Indication: CHELATION THERAPY
     Dosage: UNK
  3. ZINC [Concomitant]
     Indication: CHELATION THERAPY
     Dosage: UNK

REACTIONS (12)
  - Renal failure acute [Unknown]
  - Renal pain [Recovering/Resolving]
  - Paraesthesia [Not Recovered/Not Resolved]
  - Rash [Not Recovered/Not Resolved]
  - Neurological symptom [Recovering/Resolving]
  - Flank pain [Recovering/Resolving]
  - Headache [Recovering/Resolving]
  - Arthralgia [Not Recovered/Not Resolved]
  - Bone pain [Recovering/Resolving]
  - Myalgia [Recovering/Resolving]
  - Back pain [Recovering/Resolving]
  - Pain of skin [Recovering/Resolving]
